FAERS Safety Report 5078743-9 (Version None)
Quarter: 2006Q3

REPORT INFORMATION
  Report Type: 
  Country: None (occurrence: None)
  Receive Date: 20060813
  Receipt Date: 20060803
  Transmission Date: 20061208
  Serious: Yes (Hospitalization, Other)
  Sender: FDA-Public Use
  Company Number: AU-JNJFOC-20060701387

PATIENT
  Sex: Female

DRUGS (4)
  1. REMICADE [Suspect]
     Route: 042
  2. REMICADE [Suspect]
     Indication: CROHN'S DISEASE
     Dosage: 5 MG/KG FOR TWO DOSES ON UNSPECIFIED DATES
     Route: 042
  3. METHOTREXATE [Concomitant]
  4. STEROID [Concomitant]

REACTIONS (1)
  - LUPUS-LIKE SYNDROME [None]
